FAERS Safety Report 21962372 (Version 1)
Quarter: 2023Q1

REPORT INFORMATION
  Report Type: Report from Study
  Country: US (occurrence: US)
  Receive Date: 20230207
  Receipt Date: 20230207
  Transmission Date: 20230418
  Serious: No
  Sender: FDA-Public Use
  Company Number: US-ORG100014127-2022000293

PATIENT
  Age: 65 Year
  Sex: Female

DRUGS (3)
  1. LYSODREN [Suspect]
     Active Substance: MITOTANE
     Indication: Adrenocortical carcinoma
     Dosage: UP-TITRATION TO 8 TABLETS IN THE MORNING, 7 TABLETS MIDDAY, 7 TABLETS IN THE EVENING
     Route: 048
     Dates: start: 20210929
  2. CHLORTHALID TAB 25MG [Concomitant]
     Indication: Product used for unknown indication
  3. SERTRALINE TAB 25MG [Concomitant]
     Indication: Product used for unknown indication

REACTIONS (2)
  - Abdominal pain upper [Not Recovered/Not Resolved]
  - Nausea [Not Recovered/Not Resolved]

NARRATIVE: CASE EVENT DATE: 20220201
